FAERS Safety Report 9767102 (Version 1)
Quarter: 2013Q4

REPORT INFORMATION
  Report Type: Spontaneous
  Country: US (occurrence: US)
  Receive Date: 20131217
  Receipt Date: 20131217
  Transmission Date: 20140711
  Serious: No
  Sender: FDA-Public Use
  Company Number: US-GLAXOSMITHKLINE-A1039609A

PATIENT
  Sex: Male

DRUGS (1)
  1. VOTRIENT [Suspect]
     Indication: COLON CANCER
     Route: 065

REACTIONS (4)
  - Diarrhoea [Unknown]
  - Dysphonia [Unknown]
  - Confusional state [Unknown]
  - Blood pressure increased [Unknown]
